FAERS Safety Report 7197673-X (Version None)
Quarter: 2010Q4

REPORT INFORMATION
  Report Type: 
  Country: None (occurrence: None)
  Receive Date: 20101227
  Receipt Date: 20101213
  Transmission Date: 20110411
  Serious: Yes (Other)
  Sender: FDA-Public Use
  Company Number: IE-CELGENEUS-229-50794-10121471

PATIENT
  Age: 73 Year
  Sex: Male
  Weight: 94.9 kg

DRUGS (1)
  1. VIDAZA [Suspect]
     Route: 051
     Dates: start: 20100803, end: 20101126

REACTIONS (1)
  - OEDEMA PERIPHERAL [None]
